FAERS Safety Report 7561336-9 (Version None)
Quarter: 2011Q2

REPORT INFORMATION
  Report Type: 
  Country: None (occurrence: None)
  Receive Date: 20110621
  Receipt Date: 20110103
  Transmission Date: 20111010
  Serious: No
  Sender: FDA-Public Use
  Company Number: US-ASTRAZENECA-2010SE56687

PATIENT
  Age: 730 Month
  Sex: Female

DRUGS (3)
  1. PULMICORT [Suspect]
     Indication: BRONCHITIS
     Route: 055
     Dates: start: 20101101, end: 20101101
  2. PULMICORT [Suspect]
     Dosage: 180 UG  2 PUFFS TWICE DAILY
     Route: 055
     Dates: start: 20101124
  3. XOPONEX [Concomitant]

REACTIONS (4)
  - MALAISE [None]
  - PALPITATIONS [None]
  - DRUG INEFFECTIVE [None]
  - NAUSEA [None]
